FAERS Safety Report 13887740 (Version 1)
Quarter: 2017Q3

REPORT INFORMATION
  Report Type: Spontaneous
  Country: US (occurrence: US)
  Receive Date: 20170821
  Receipt Date: 20170821
  Transmission Date: 20171127
  Serious: Yes (Other)
  Sender: FDA-Public Use
  Company Number: US-ACTELION-A-NJ2017-158158

PATIENT
  Age: 55 Year
  Sex: Female

DRUGS (18)
  1. PRAVASTATIN. [Concomitant]
     Active Substance: PRAVASTATIN
  2. POTASSIUM CHLORIDE. [Concomitant]
     Active Substance: POTASSIUM CHLORIDE
  3. SPIRONOLACTON [Concomitant]
     Active Substance: SPIRONOLACTONE
  4. DIGITEK [Concomitant]
     Active Substance: DIGOXIN
  5. GABAPENTIN. [Concomitant]
     Active Substance: GABAPENTIN
  6. ACETAMIN [Concomitant]
     Active Substance: ACETAMINOPHEN
  7. REVATIO [Concomitant]
     Active Substance: SILDENAFIL CITRATE
  8. PREDNISONE. [Concomitant]
     Active Substance: PREDNISONE
  9. NORCO [Concomitant]
     Active Substance: ACETAMINOPHEN\HYDROCODONE BITARTRATE
  10. TRACLEER [Suspect]
     Active Substance: BOSENTAN
     Indication: PULMONARY ARTERIAL HYPERTENSION
     Dosage: 125 MG, BID
     Route: 048
     Dates: start: 20160130, end: 201707
  11. ALENDRONATE [Concomitant]
     Active Substance: ALENDRONATE SODIUM
  12. VITAMIN C [Concomitant]
     Active Substance: ASCORBIC ACID
  13. FUROSEMIDE. [Concomitant]
     Active Substance: FUROSEMIDE
  14. FISH OIL [Concomitant]
     Active Substance: FISH OIL
  15. METOPROLOL. [Concomitant]
     Active Substance: METOPROLOL
  16. ASPIRIN. [Concomitant]
     Active Substance: ASPIRIN
  17. DILTIAZEM. [Concomitant]
     Active Substance: DILTIAZEM
  18. CELLCEPT [Concomitant]
     Active Substance: MYCOPHENOLATE MOFETIL\MYCOPHENOLATE MOFETIL HYDROCHLORIDE

REACTIONS (2)
  - Fatigue [Not Recovered/Not Resolved]
  - Lung transplant [Unknown]
